FAERS Safety Report 8797429 (Version 3)
Quarter: 2014Q2

REPORT INFORMATION
  Report Type: Spontaneous
  Country: US (occurrence: US)
  Receive Date: 20120919
  Receipt Date: 20131111
  Transmission Date: 20141212
  Serious: Yes (Death)
  Sender: FDA-Public Use
  Company Number: US-ROCHE-1128641

PATIENT
  Sex: Male

DRUGS (3)
  1. AVASTIN [Suspect]
     Indication: BRAIN NEOPLASM MALIGNANT
     Route: 065
  2. AVASTIN [Suspect]
     Indication: MENINGIOMA BENIGN
  3. AVASTIN [Suspect]
     Indication: MENINGIOMA

REACTIONS (1)
  - Disease progression [Fatal]
